FAERS Safety Report 7722500-9 (Version None)
Quarter: 2011Q3

REPORT INFORMATION
  Report Type: 
  Country: None (occurrence: None)
  Receive Date: 20110831
  Receipt Date: 20110829
  Transmission Date: 20111222
  Serious: Yes (Other)
  Sender: FDA-Public Use
  Company Number: US-PFIZER INC-2011192700

PATIENT
  Sex: Female
  Weight: 56.689 kg

DRUGS (12)
  1. CYMBALTA [Suspect]
     Indication: DEPRESSION
     Dosage: UNK
  2. SIMVASTATIN [Concomitant]
     Indication: BLOOD CHOLESTEROL INCREASED
     Dosage: 20 MG, DAILY
  3. SYNTHROID [Concomitant]
     Indication: HYPOTHYROIDISM
     Dosage: 0.05 UG, DAILY
  4. LISINOPRIL [Concomitant]
     Indication: HYPERTENSION
     Dosage: 10 MG, DAILY
  5. LAMOTRIGINE [Concomitant]
     Indication: DEPRESSION
     Dosage: 100 MG, 2X/DAY
  6. GABAPENTIN [Concomitant]
     Indication: SCIATIC NERVE NEUROPATHY
     Dosage: 300 MG, 2X/DAY
  7. POTASSIUM [Concomitant]
     Indication: BLOOD POTASSIUM DECREASED
     Dosage: 20 MEQ, DAILY
  8. CHANTIX [Suspect]
     Dosage: UNK
     Route: 048
     Dates: start: 20110801
  9. ASPIRIN [Concomitant]
     Dosage: 81 MG, DAILY
  10. CHANTIX [Suspect]
     Indication: SMOKING CESSATION THERAPY
     Dosage: UNK
     Dates: start: 20080101
  11. SEROQUEL [Suspect]
     Indication: INSOMNIA
     Dosage: 25 MG DAILY OR 50 MG DAILY AS NEEDED
  12. CHLORDIAZEPOXIDE [Concomitant]
     Indication: ANXIETY
     Dosage: AS NEEDED

REACTIONS (3)
  - IRRITABILITY [None]
  - AGITATION [None]
  - WITHDRAWAL SYNDROME [None]
